APPROVED DRUG PRODUCT: METAPROTERENOL SULFATE
Active Ingredient: METAPROTERENOL SULFATE
Strength: 20MG
Dosage Form/Route: TABLET;ORAL
Application: A071014 | Product #001
Applicant: USL PHARMA INC
Approved: Jan 25, 1988 | RLD: No | RS: No | Type: DISCN